FAERS Safety Report 13571037 (Version 1)
Quarter: 2017Q2

REPORT INFORMATION
  Report Type: Report from Study
  Country: US (occurrence: US)
  Receive Date: 20170523
  Receipt Date: 20170523
  Transmission Date: 20170830
  Serious: No
  Sender: FDA-Public Use
  Company Number: PHEH2017US015092

PATIENT
  Sex: Female
  Weight: 68.3 kg

DRUGS (1)
  1. KISQALI [Suspect]
     Active Substance: RIBOCICLIB
     Indication: PRODUCT USED FOR UNKNOWN INDICATION
     Dosage: 600 MG, TID
     Route: 048
     Dates: start: 20170501

REACTIONS (3)
  - Vein collapse [Unknown]
  - Inappropriate schedule of drug administration [Unknown]
  - Dehydration [Unknown]
